FAERS Safety Report 11749167 (Version 1)
Quarter: 2015Q4

REPORT INFORMATION
  Report Type: Spontaneous
  Country: US (occurrence: None)
  Receive Date: 20151117
  Receipt Date: 20151117
  Transmission Date: 20160304
  Serious: Yes (Other)
  Sender: FDA-Public Use
  Company Number: None

PATIENT
  Age: 30 Year
  Sex: Female
  Weight: 68.04 kg

DRUGS (8)
  1. OMEPROZOLE [Concomitant]
     Active Substance: OMEPRAZOLE
  2. MEDTRONIC NEUROSTIMULATOR IMPLANT [Concomitant]
  3. ADVIL [Concomitant]
     Active Substance: IBUPROFEN
  4. CARISOPRODOL 350MG RISING PHARMACEUTICALS [Suspect]
     Active Substance: CARISOPRODOL
     Indication: MYALGIA
     Dosage: 4 PILLS
     Route: 048
     Dates: start: 20151110, end: 20151116
  5. FENTANYL PATCHES [Concomitant]
     Active Substance: FENTANYL
  6. CARISOPRODOL 350MG RISING PHARMACEUTICALS [Suspect]
     Active Substance: CARISOPRODOL
     Indication: MUSCLE SPASMS
     Dosage: 4 PILLS
     Route: 048
     Dates: start: 20151110, end: 20151116
  7. EXCEDRIN [Concomitant]
     Active Substance: ACETAMINOPHEN\ASPIRIN\CAFFEINE
  8. NORCO [Concomitant]
     Active Substance: ACETAMINOPHEN\HYDROCODONE BITARTRATE

REACTIONS (5)
  - Nausea [None]
  - Drug ineffective [None]
  - Headache [None]
  - Pain [None]
  - Product substitution issue [None]

NARRATIVE: CASE EVENT DATE: 20151110
